FAERS Safety Report 11304377 (Version 1)
Quarter: 2015Q3

REPORT INFORMATION
  Report Type: Spontaneous
  Country: US (occurrence: US)
  Receive Date: 20150723
  Receipt Date: 20150723
  Transmission Date: 20151125
  Serious: No
  Sender: FDA-Public Use
  Company Number: US-JNJFOC-20150601337

PATIENT
  Sex: Female
  Weight: 75.75 kg

DRUGS (6)
  1. ZYRTEC [Suspect]
     Active Substance: CETIRIZINE HYDROCHLORIDE
     Indication: SINUSITIS
     Route: 048
     Dates: start: 20150323, end: 20150324
  2. LYSINE [Concomitant]
     Active Substance: LYSINE
     Indication: ORAL HERPES
     Route: 065
  3. VALTREX [Concomitant]
     Active Substance: VALACYCLOVIR HYDROCHLORIDE
     Indication: ORAL HERPES
     Route: 065
  4. LYSINE [Concomitant]
     Active Substance: LYSINE
     Indication: IMMUNE ENHANCEMENT THERAPY
     Route: 065
  5. ACYCLOVIR. [Concomitant]
     Active Substance: ACYCLOVIR
     Indication: ORAL HERPES
     Route: 065
  6. ZYRTEC [Suspect]
     Active Substance: CETIRIZINE HYDROCHLORIDE
     Indication: MULTIPLE ALLERGIES
     Route: 048
     Dates: start: 20150323, end: 20150324

REACTIONS (1)
  - Drug ineffective [Unknown]
